FAERS Safety Report 9624450 (Version 1)
Quarter: 2013Q4

REPORT INFORMATION
  Report Type: Spontaneous
  Country: FR (occurrence: FR)
  Receive Date: 20131015
  Receipt Date: 20131015
  Transmission Date: 20140711
  Serious: Yes (Hospitalization)
  Sender: FDA-Public Use
  Company Number: FR-PFIZER INC-2013294041

PATIENT
  Age: 84 Year
  Sex: Female

DRUGS (5)
  1. CORDARONE [Suspect]
     Indication: ATRIAL FIBRILLATION
     Dosage: 100 MG, DAILY
     Route: 048
  2. PREVISCAN [Suspect]
     Indication: ATRIAL FIBRILLATION
     Dosage: 0.5 DF/DAY 3 DAYS/ONE WEEK; 0.75 DF/DAY 4 DAYS/OTHER WEEK
     Route: 048
     Dates: end: 20121010
  3. LEVOTHYROX [Suspect]
     Indication: HYPOTHYROIDISM
     Dosage: 62.5 UG, DAILY
     Route: 048
  4. DIGOXINE NATIVELLE [Suspect]
     Dosage: 0.5 DF, UNK
     Route: 048
     Dates: end: 20121011
  5. ATACAND [Suspect]
     Dosage: 1 DF, UNK
     Route: 048

REACTIONS (3)
  - Fall [Recovered/Resolved]
  - Subdural haematoma [Recovered/Resolved]
  - Wound [Recovered/Resolved]
